FAERS Safety Report 13334603 (Version 4)
Quarter: 2017Q3

REPORT INFORMATION
  Report Type: Spontaneous
  Country: JP (occurrence: JP)
  Receive Date: 20170314
  Receipt Date: 20170706
  Transmission Date: 20171127
  Serious: Yes (Death, Hospitalization)
  Sender: FDA-Public Use
  Company Number: JP-PFIZER INC-2017102105

PATIENT
  Age: 50 Year
  Sex: Male
  Weight: 67.6 kg

DRUGS (10)
  1. TYGACIL [Suspect]
     Active Substance: TIGECYCLINE
     Indication: ENTEROBACTER INFECTION
     Dosage: 100 MG, DAILY
     Route: 041
     Dates: start: 20170213, end: 20170213
  2. VITAJECT /00176001/ [Suspect]
     Active Substance: CYANOCOBALAMIN\PYRIDOXINE HYDROCHLORIDE\THIAMINE
     Indication: NUTRITIONAL SUPPLEMENTATION
     Dosage: 1 DF, 1X/DAY
     Route: 042
     Dates: start: 20170104, end: 20170308
  3. HICALIQ [Suspect]
     Active Substance: CALCIUM GLUCONATE\DEXTROSE\MAGNESIUM SULFATE\POTASSIUM ACETATE\POTASSIUM PHOSPHATE, DIBASIC\ZINC SULFATE
     Indication: NUTRITIONAL SUPPLEMENTATION
     Dosage: 1 DF, 1X/DAY
     Route: 042
     Dates: start: 20170104, end: 20170308
  4. NAFATAT [Suspect]
     Active Substance: NAFAMOSTAT MESYLATE
     Indication: DISSEMINATED INTRAVASCULAR COAGULATION
     Dosage: 200 MG DISSOLVED IN 100 ML OF 5% GLUCOSE SOLUTION AT A RATE OF 4 ML PER HOUR FOR 24 HOURS
     Route: 042
     Dates: start: 20170219, end: 20170306
  5. TYGACIL [Suspect]
     Active Substance: TIGECYCLINE
     Dosage: 50 MG, 2X/DAY
     Dates: start: 20170214, end: 20170308
  6. PRECEDEX [Suspect]
     Active Substance: DEXMEDETOMIDINE HYDROCHLORIDE
     Indication: SEDATION
     Dosage: 400 MCG (DISSOLVED IN 36 ML OF PHYSIOLOGICAL SALINE) AT A RATE OF 2-8 ML PER HOUR
     Route: 042
     Dates: start: 20161230, end: 20170308
  7. OLIVES [Concomitant]
     Active Substance: LIDOCAINE HYDROCHLORIDE
     Indication: VENTRICULAR EXTRASYSTOLES
     Dosage: A RATE OF 2 ML PER HOUR
     Route: 042
     Dates: start: 20170206, end: 20170302
  8. SALINE /00075401/ [Suspect]
     Active Substance: SODIUM CHLORIDE
     Indication: NUTRITIONAL SUPPLEMENTATION
     Dosage: 1 DF, 1X/DAY
     Route: 042
     Dates: start: 20170104, end: 20170308
  9. KIDMIN /01983701/ [Suspect]
     Active Substance: AMINO ACIDS
     Indication: NUTRITIONAL SUPPLEMENTATION
     Dosage: 1 DF, 1X/DAY
     Route: 042
     Dates: start: 20170104, end: 20170308
  10. AMIKACIN [Suspect]
     Active Substance: AMIKACIN
     Indication: ENTEROBACTER INFECTION
     Dosage: 600 MG, 3X/WEEK AFTER DIALYSIS
     Route: 041
     Dates: start: 20170213, end: 20170308

REACTIONS (3)
  - Blood bilirubin unconjugated increased [Unknown]
  - Gamma-glutamyltransferase increased [Unknown]
  - Blood alkaline phosphatase increased [Unknown]

NARRATIVE: CASE EVENT DATE: 20170225
